FAERS Safety Report 9501159 (Version 1)
Quarter: 2013Q1

REPORT INFORMATION
  Report Type: Spontaneous
  Country: US (occurrence: None)
  Receive Date: 20130107
  Receipt Date: 20130107
  Transmission Date: 20140127
  Serious: No
  Sender: FDA-Public Use
  Company Number: PHEH2012US017296

PATIENT
  Age: 35 Year
  Sex: Male

DRUGS (1)
  1. GILENYA (FTY) CAPSULE, 0.5MG [Suspect]
     Indication: MULTIPLE SCLEROSIS
     Route: 048
     Dates: start: 20120816

REACTIONS (6)
  - Fatigue [None]
  - Syncope [None]
  - Anxiety [None]
  - Heart rate irregular [None]
  - Heart rate increased [None]
  - Dizziness [None]
